FAERS Safety Report 15803974 (Version 1)
Quarter: 2019Q1

REPORT INFORMATION
  Report Type: Spontaneous
  Country: CA (occurrence: CA)
  Receive Date: 20190109
  Receipt Date: 20190109
  Transmission Date: 20190417
  Serious: Yes (Hospitalization, Other)
  Sender: FDA-Public Use
  Company Number: CA-009507513-1901CAN002459

PATIENT
  Sex: Female

DRUGS (47)
  1. PREDNISONE. [Suspect]
     Active Substance: PREDNISONE
     Indication: PRODUCT USE IN UNAPPROVED INDICATION
  2. ERGOCALCIFEROL. [Suspect]
     Active Substance: ERGOCALCIFEROL
     Indication: PRODUCT USE IN UNAPPROVED INDICATION
  3. FUROSEMIDE. [Suspect]
     Active Substance: FUROSEMIDE
     Indication: PRODUCT USE IN UNAPPROVED INDICATION
  4. SENNOSIDES. [Suspect]
     Active Substance: SENNOSIDES
     Indication: PRODUCT USE IN UNAPPROVED INDICATION
  5. VITAMIN B COMPLEX [Suspect]
     Active Substance: CYANOCOBALAMIN\DEXPANTHENOL\NIACINAMIDE\PYRIDOXINE HYDROCHLORIDE\RIBOFLAVIN 5^-PHOSPHATE SODIUM\THIAMINE HYDROCHLORIDE\VITAMIN B COMPLEX
     Indication: PRODUCT USE IN UNAPPROVED INDICATION
  6. ALENDRONATE SODIUM. [Suspect]
     Active Substance: ALENDRONATE SODIUM
     Indication: PRODUCT USE IN UNAPPROVED INDICATION
     Dosage: UNK
     Route: 065
  7. CALCIUM CARBONATE. [Suspect]
     Active Substance: CALCIUM CARBONATE
     Indication: PRODUCT USE IN UNAPPROVED INDICATION
  8. DULOXETINE HYDROCHLORIDE. [Suspect]
     Active Substance: DULOXETINE HYDROCHLORIDE
     Indication: PRODUCT USE IN UNAPPROVED INDICATION
     Dosage: 3.0 MG, QD
     Route: 048
  9. DEXPANTHENOL. [Suspect]
     Active Substance: DEXPANTHENOL
     Indication: PRODUCT USE IN UNAPPROVED INDICATION
  10. LYRICA [Suspect]
     Active Substance: PREGABALIN
     Indication: PRODUCT USE IN UNAPPROVED INDICATION
  11. NORTRIPTYLINE HYDROCHLORIDE. [Suspect]
     Active Substance: NORTRIPTYLINE HYDROCHLORIDE
     Indication: PRODUCT USE IN UNAPPROVED INDICATION
  12. LORATADINE 5 MG [Suspect]
     Active Substance: LORATADINE
     Indication: PRODUCT USE IN UNAPPROVED INDICATION
     Dosage: UNK
     Route: 065
  13. AMINOBENZOIC ACID (+) BIOFLAVONOIDS (+) CHOLINE (+) INOSITOL (+) MINER [Suspect]
     Active Substance: MINERALS\VITAMINS
     Indication: PRODUCT USED FOR UNKNOWN INDICATION
     Route: 065
  14. BACLOFEN. [Suspect]
     Active Substance: BACLOFEN
     Indication: PRODUCT USE IN UNAPPROVED INDICATION
  15. DELTA-TOCOPHEROL [Suspect]
     Active Substance: .DELTA.-TOCOPHEROL, DL-
     Indication: PRODUCT USE IN UNAPPROVED INDICATION
  16. GUAIFENESIN (+) SULFAMETHOXAZOLE (+) TRIMETHOPRIM [Suspect]
     Active Substance: GUAIFENESIN\SULFAMETHOXAZOLE\TRIMETHOPRIM
     Indication: PRODUCT USE IN UNAPPROVED INDICATION
  17. CALCIUM CARBONATE. [Suspect]
     Active Substance: CALCIUM CARBONATE
     Indication: PRODUCT USE IN UNAPPROVED INDICATION
  18. ATIVAN [Suspect]
     Active Substance: LORAZEPAM
     Indication: PRODUCT USE IN UNAPPROVED INDICATION
  19. BIFIDOBACTERIUM LACTIS [Suspect]
     Active Substance: BIFIDOBACTERIUM ANIMALIS LACTIS
     Indication: PRODUCT USE IN UNAPPROVED INDICATION
  20. DOCUSATE SODIUM. [Suspect]
     Active Substance: DOCUSATE SODIUM
     Indication: PRODUCT USE IN UNAPPROVED INDICATION
  21. DULOXETINE HYDROCHLORIDE. [Suspect]
     Active Substance: DULOXETINE HYDROCHLORIDE
     Dosage: 1.0 MG, QD
     Route: 048
  22. ZANTAC [Suspect]
     Active Substance: RANITIDINE HYDROCHLORIDE
     Indication: PRODUCT USE IN UNAPPROVED INDICATION
  23. PHENAZOPYRIDINE HYDROCHLORIDE. [Suspect]
     Active Substance: PHENAZOPYRIDINE HYDROCHLORIDE
  24. SULFAMETHOXAZOLE (+) TRIMETHOPRIM [Suspect]
     Active Substance: SULFAMETHOXAZOLE\TRIMETHOPRIM
     Indication: PRODUCT USE IN UNAPPROVED INDICATION
  25. ANTILYMPHOCYTE IMMUNOGLOBULIN [Suspect]
     Active Substance: THYMOCYTE IMMUNE GLOBULIN NOS
     Indication: PRODUCT USE IN UNAPPROVED INDICATION
     Dosage: UNK
     Route: 042
  26. CALCIUM (UNSPECIFIED) [Suspect]
     Active Substance: CALCIUM
     Indication: PRODUCT USE IN UNAPPROVED INDICATION
  27. DOCOSAHEXAENOIC ACID [Suspect]
     Active Substance: DOCONEXENT
     Indication: PRODUCT USE IN UNAPPROVED INDICATION
  28. HYDROMORPHONE HYDROCHLORIDE. [Suspect]
     Active Substance: HYDROMORPHONE HYDROCHLORIDE
     Indication: PRODUCT USE IN UNAPPROVED INDICATION
  29. IMODIUM [Suspect]
     Active Substance: LOPERAMIDE HYDROCHLORIDE
     Indication: PRODUCT USE IN UNAPPROVED INDICATION
  30. PYRIDOXINE HYDROCHLORIDE. [Suspect]
     Active Substance: PYRIDOXINE HYDROCHLORIDE
     Indication: PRODUCT USE IN UNAPPROVED INDICATION
  31. TIZANIDINE HYDROCHLORIDE. [Suspect]
     Active Substance: TIZANIDINE HYDROCHLORIDE
     Indication: PRODUCT USE IN UNAPPROVED INDICATION
  32. ASCORBIC ACID. [Suspect]
     Active Substance: ASCORBIC ACID
     Indication: PRODUCT USE IN UNAPPROVED INDICATION
  33. WARFARIN [Suspect]
     Active Substance: WARFARIN
     Indication: PRODUCT USE IN UNAPPROVED INDICATION
  34. ZOPICLONE [Suspect]
     Active Substance: ZOPICLONE
     Indication: PRODUCT USE IN UNAPPROVED INDICATION
  35. LACTOBACILLUS ACIDOPHILUS [Suspect]
     Active Substance: LACTOBACILLUS ACIDOPHILUS
     Indication: PRODUCT USE IN UNAPPROVED INDICATION
     Route: 048
  36. APO ZOPICLONE [Suspect]
     Active Substance: ZOPICLONE
     Indication: PRODUCT USE IN UNAPPROVED INDICATION
  37. HYDROMORPHONE [Suspect]
     Active Substance: HYDROMORPHONE
     Indication: PRODUCT USE IN UNAPPROVED INDICATION
  38. MELATONIN [Suspect]
     Active Substance: MELATONIN
     Indication: PRODUCT USE IN UNAPPROVED INDICATION
  39. MYCOPHENOLATE MOFETIL. [Suspect]
     Active Substance: MYCOPHENOLATE MOFETIL
     Indication: PRODUCT USE IN UNAPPROVED INDICATION
  40. NIACINAMIDE [Suspect]
     Active Substance: NIACINAMIDE
     Indication: PRODUCT USE IN UNAPPROVED INDICATION
  41. NOVO-HYDRAZIDE [Suspect]
     Active Substance: HYDROCHLOROTHIAZIDE
     Indication: PRODUCT USE IN UNAPPROVED INDICATION
  42. POTASSIUM CHLORIDE. [Suspect]
     Active Substance: POTASSIUM CHLORIDE
     Indication: PRODUCT USE IN UNAPPROVED INDICATION
  43. MOMETASONE FUROATE. [Suspect]
     Active Substance: MOMETASONE FUROATE
     Indication: PRODUCT USE IN UNAPPROVED INDICATION
  44. NASONEX [Suspect]
     Active Substance: MOMETASONE FUROATE
     Indication: PRODUCT USE IN UNAPPROVED INDICATION
  45. APO BACLOFEN [Suspect]
     Active Substance: BACLOFEN
     Indication: PRODUCT USE IN UNAPPROVED INDICATION
  46. CYANOCOBALAMIN. [Suspect]
     Active Substance: CYANOCOBALAMIN
     Indication: PRODUCT USE IN UNAPPROVED INDICATION
  47. OMEGA-3 MARINE TRIGLYCERIDES [Suspect]
     Active Substance: FISH OIL
     Indication: PRODUCT USE IN UNAPPROVED INDICATION

REACTIONS (4)
  - Coma [Recovered/Resolved]
  - Pneumonia aspiration [Recovered/Resolved]
  - Somnolence [Recovered/Resolved]
  - Gastrooesophageal reflux disease [Recovered/Resolved]
